FAERS Safety Report 4273205-0 (Version None)
Quarter: 2004Q1

REPORT INFORMATION
  Report Type: 
  Country: None (occurrence: None)
  Receive Date: 20040116
  Receipt Date: 20030819
  Transmission Date: 20041129
  Serious: Yes (Hospitalization)
  Sender: FDA-Public Use
  Company Number: US-BRISTOL-MYERS SQUIBB COMPANY-12360095

PATIENT
  Age: 82 Year
  Sex: Female
  Weight: 57 kg

DRUGS (10)
  1. GLUCOPHAGE [Suspect]
     Indication: DIABETES MELLITUS NON-INSULIN-DEPENDENT
     Dosage: DURATION OF THERAPY:  ^7-8 YEARS^
     Route: 048
     Dates: end: 20030728
  2. CELEBREX [Concomitant]
  3. ASPIRIN [Concomitant]
  4. GLYBURIDE [Concomitant]
  5. NIASPAN [Concomitant]
  6. LISINOPRIL [Concomitant]
  7. COREG [Concomitant]
     Dosage: STRENGTH:  25 MILLIGRAM
  8. LIPITOR [Concomitant]
  9. THIOTHIXENE [Concomitant]
  10. ELAVIL [Concomitant]

REACTIONS (19)
  - ANXIETY [None]
  - ASOCIAL BEHAVIOUR [None]
  - BILE DUCT STONE [None]
  - BLOOD SODIUM DECREASED [None]
  - CONFUSIONAL STATE [None]
  - DEMENTIA [None]
  - DRUG TOXICITY [None]
  - DYSPNOEA [None]
  - ILEUS [None]
  - LABORATORY TEST ABNORMAL [None]
  - LACTIC ACIDOSIS [None]
  - MENTAL IMPAIRMENT [None]
  - METABOLIC ACIDOSIS [None]
  - METABOLIC ENCEPHALOPATHY [None]
  - OEDEMA PERIPHERAL [None]
  - PULMONARY OEDEMA [None]
  - RESPIRATORY DISORDER [None]
  - SWELLING [None]
  - SWELLING FACE [None]
